FAERS Safety Report 19480989 (Version 1)
Quarter: 2021Q3

REPORT INFORMATION
  Report Type: Other
  Country: GB (occurrence: GB)
  Receive Date: 20210701
  Receipt Date: 20210701
  Transmission Date: 20211014
  Serious: Yes (Other)
  Sender: FDA-Public Use
  Company Number: GB-CELLTRION INC.-2021GB008721

PATIENT

DRUGS (3)
  1. PARACETAMOL [Concomitant]
     Active Substance: ACETAMINOPHEN
     Dosage: ON THE MORNING OF INFUSION
  2. CODEINE [Concomitant]
     Active Substance: CODEINE
     Dosage: ON THE MORNING OF INFUSION
  3. TRUXIMA [Suspect]
     Active Substance: RITUXIMAB-ABBS
     Indication: RHEUMATOID ARTHRITIS
     Dosage: 1000MG/500ML. 49 ML ADMINISTERED
     Route: 042
     Dates: start: 20210621, end: 20210621

REACTIONS (4)
  - Malaise [Unknown]
  - Pruritus [Recovering/Resolving]
  - Urticaria [Recovered/Resolved]
  - Nausea [Unknown]

NARRATIVE: CASE EVENT DATE: 20210621
